FAERS Safety Report 5179159-7 (Version None)
Quarter: 2006Q4

REPORT INFORMATION
  Report Type: 
  Country: None (occurrence: None)
  Receive Date: 20061219
  Receipt Date: 20061211
  Transmission Date: 20070319
  Serious: Yes (Other)
  Sender: FDA-Public Use
  Company Number: 2006UW27393

PATIENT
  Age: 742 Month
  Sex: Female

DRUGS (11)
  1. ARIMIDEX [Suspect]
     Indication: BREAST CANCER FEMALE
     Route: 048
     Dates: start: 20020801
  2. HERBAL FIBRES [Concomitant]
     Indication: LAXATIVE SUPPORTIVE CARE
     Route: 048
  3. ASPIRIN [Concomitant]
     Indication: MYOCARDIAL INFARCTION
     Route: 048
  4. ASPIRIN [Concomitant]
     Indication: CEREBROVASCULAR ACCIDENT
     Route: 048
  5. MULTI-VITAMIN [Concomitant]
     Indication: SUPPLEMENTATION THERAPY
     Dosage: 1 TABLET
     Route: 048
  6. SELENIUM SULFIDE [Concomitant]
     Indication: SUPPLEMENTATION THERAPY
     Route: 048
  7. CALCIUM [Concomitant]
     Indication: SUPPLEMENTATION THERAPY
     Route: 048
  8. COENZYME Q10 [Concomitant]
     Indication: SUPPLEMENTATION THERAPY
     Route: 048
  9. VITAMIN D [Concomitant]
     Indication: SUPPLEMENTATION THERAPY
     Route: 048
  10. KYOLLOC [Concomitant]
     Indication: SUPPLEMENTATION THERAPY
     Route: 048
  11. MAGNESIUM [Concomitant]
     Indication: SUPPLEMENTATION THERAPY
     Route: 048

REACTIONS (9)
  - ARTHRALGIA [None]
  - BLOOD PRESSURE INCREASED [None]
  - BLOOD URINE PRESENT [None]
  - BONE PAIN [None]
  - CYSTITIS [None]
  - HOT FLUSH [None]
  - KIDNEY INFECTION [None]
  - LOWER LIMB FRACTURE [None]
  - PANIC ATTACK [None]
